FAERS Safety Report 18262601 (Version 1)
Quarter: 2020Q3

REPORT INFORMATION
  Report Type: Spontaneous
  Country: GB (occurrence: GB)
  Receive Date: 20200911
  Receipt Date: 20200911
  Transmission Date: 20201103
  Serious: Yes (Hospitalization)
  Sender: FDA-Public Use
  Company Number: None

PATIENT
  Sex: Female

DRUGS (22)
  1. CLOBETASOL [Suspect]
     Active Substance: CLOBETASOL
  2. CEPHALEXIN. [Suspect]
     Active Substance: CEPHALEXIN
  3. BACOFEN [Suspect]
     Active Substance: BACLOFEN
  4. CHANTIX [Suspect]
     Active Substance: VARENICLINE TARTRATE
  5. DICLOFENAC [Suspect]
     Active Substance: DICLOFENAC
  6. TALTZ [Suspect]
     Active Substance: IXEKIZUMAB
     Indication: PSORIASIS
     Route: 058
     Dates: start: 20200123
  7. DEXTROAMPHET SACCHARAT, AMPHET ASPARTATE, DEXTROAMPHET SULFATE AND AMPHET SULFAT [Concomitant]
     Active Substance: AMPHETAMINE ASPARTATE\AMPHETAMINE SULFATE\DEXTROAMPHETAMINE SACCHARATE\DEXTROAMPHETAMINE SULFATE
  8. CLONAZEPAM. [Suspect]
     Active Substance: CLONAZEPAM
  9. DEXILANT [Suspect]
     Active Substance: DEXLANSOPRAZOLE
  10. ETODOLAC. [Suspect]
     Active Substance: ETODOLAC
  11. KLONOPIN [Suspect]
     Active Substance: CLONAZEPAM
  12. SMZ/TMP DS [Suspect]
     Active Substance: SULFAMETHOXAZOLE\TRIMETHOPRIM
  13. BUPREN/NALOX [Suspect]
     Active Substance: BUPRENORPHINE\NALOXONE
  14. LISINOPRIL. [Suspect]
     Active Substance: LISINOPRIL
  15. SUBOXONE [Suspect]
     Active Substance: BUPRENORPHINE HYDROCHLORIDE\NALOXONE HYDROCHLORIDE
  16. BUT/APAP/CAF, [Concomitant]
  17. KETOROLAC [Suspect]
     Active Substance: KETOROLAC TROMETHAMINE
  18. OFLOXACIN. [Suspect]
     Active Substance: OFLOXACIN
  19. ADDERALL XR [Suspect]
     Active Substance: AMPHETAMINE ASPARTATE\AMPHETAMINE SULFATE\DEXTROAMPHETAMINE SACCHARATE\DEXTROAMPHETAMINE SULFATE
  20. FLUTICASONE. [Suspect]
     Active Substance: FLUTICASONE
  21. METOPROL SUC ER [Concomitant]
  22. MUPIROCIN. [Suspect]
     Active Substance: MUPIROCIN

REACTIONS (2)
  - Blood glucose decreased [None]
  - Hypertension [None]
